FAERS Safety Report 17878684 (Version 1)
Quarter: 2020Q2

REPORT INFORMATION
  Report Type: Spontaneous
  Country: US (occurrence: US)
  Receive Date: 20200610
  Receipt Date: 20200610
  Transmission Date: 20200714
  Serious: No
  Sender: FDA-Public Use
  Company Number: US-SPECGX-T202000155

PATIENT
  Age: 52 Year
  Sex: Female
  Weight: 68 kg

DRUGS (1)
  1. HYDROCODONE/ACETAMINOPHEN [Suspect]
     Active Substance: ACETAMINOPHEN\HYDROCODONE
     Indication: PAIN
     Dosage: UNK, EVERY 12 HOURS
     Route: 065
     Dates: start: 201912

REACTIONS (9)
  - Feeling abnormal [Not Recovered/Not Resolved]
  - Nausea [Not Recovered/Not Resolved]
  - Hunger [Not Recovered/Not Resolved]
  - Screaming [Not Recovered/Not Resolved]
  - Drug ineffective [Not Recovered/Not Resolved]
  - Binge eating [Not Recovered/Not Resolved]
  - Malaise [Unknown]
  - Anger [Not Recovered/Not Resolved]
  - Product quality issue [Unknown]

NARRATIVE: CASE EVENT DATE: 202001
